FAERS Safety Report 10441112 (Version 2)
Quarter: 2015Q2

REPORT INFORMATION
  Report Type: Spontaneous
  Country: US (occurrence: US)
  Receive Date: 20140909
  Receipt Date: 20150527
  Transmission Date: 20150821
  Serious: Yes (Hospitalization)
  Sender: FDA-Public Use
  Company Number: US-BAYER-2014-133901

PATIENT
  Age: 19 Year
  Sex: Female
  Weight: 77.98 kg

DRUGS (6)
  1. KETOROLAC [Concomitant]
     Active Substance: KETOROLAC\KETOROLAC TROMETHAMINE
     Indication: HEADACHE
     Dosage: UNK
     Dates: start: 20120514, end: 20120518
  2. OCELLA [Suspect]
     Active Substance: DROSPIRENONE\ETHINYL ESTRADIOL
     Indication: MENSTRUAL CYCLE MANAGEMENT
     Dosage: UNK
     Dates: start: 20081111, end: 20120518
  3. LORTAB [Concomitant]
     Active Substance: ACETAMINOPHEN\HYDROCODONE BITARTRATE
     Dosage: UNK
     Dates: start: 201205
  4. HYDROCODONE/ACETAMINOPHEN [Concomitant]
     Active Substance: ACETAMINOPHEN\HYDROCODONE
     Indication: HEADACHE
     Dosage: UNK
     Dates: start: 20110413, end: 20120525
  5. YAZ [Suspect]
     Active Substance: DROSPIRENONE\ETHINYL ESTRADIOL
  6. METHYLPREDNISOLON [Concomitant]
     Active Substance: METHYLPREDNISOLONE

REACTIONS (14)
  - Pain [Not Recovered/Not Resolved]
  - Injury [Not Recovered/Not Resolved]
  - Scar [None]
  - Transverse sinus thrombosis [Not Recovered/Not Resolved]
  - Emotional distress [None]
  - Vision blurred [Not Recovered/Not Resolved]
  - Deep vein thrombosis [None]
  - Anxiety [None]
  - Pain [None]
  - Off label use [None]
  - General physical health deterioration [Not Recovered/Not Resolved]
  - Ear infection [None]
  - Intracranial venous sinus thrombosis [Not Recovered/Not Resolved]
  - Intraocular pressure increased [Not Recovered/Not Resolved]

NARRATIVE: CASE EVENT DATE: 201205
